FAERS Safety Report 4822565-8 (Version None)
Quarter: 2005Q4

REPORT INFORMATION
  Report Type: 
  Country: None (occurrence: None)
  Receive Date: 20051104
  Receipt Date: 20051104
  Transmission Date: 20060501
  Serious: Yes (Hospitalization)
  Sender: FDA-Public Use
  Company Number: None

PATIENT
  Sex: Male
  Weight: 85 kg

DRUGS (3)
  1. CYTARABINE [Suspect]
     Indication: ACUTE MYELOID LEUKAEMIA
     Dosage: SEE IMAGE
     Dates: start: 20051012, end: 20051016
  2. LEUKINE [Suspect]
     Dosage: SEE IMAGE
     Dates: start: 20051012
  3. LEUKINE [Suspect]
     Dosage: SEE IMAGE
     Dates: start: 20051022

REACTIONS (1)
  - FEBRILE NEUTROPENIA [None]
